FAERS Safety Report 22642933 (Version 1)
Quarter: 2023Q2

REPORT INFORMATION
  Report Type: Other
  Country: None (occurrence: US)
  Receive Date: 20230627
  Receipt Date: 20230627
  Transmission Date: 20230722
  Serious: Yes (Hospitalization, Other)
  Sender: FDA-Public Use
  Company Number: US-BIOLOGICAL E. LTD-2143144

PATIENT
  Age: 17 Year
  Sex: Male

DRUGS (2)
  1. HEPARIN SODIUM [Suspect]
     Active Substance: HEPARIN SODIUM
     Indication: Thrombosis
     Route: 065
  2. APIXABAN [Suspect]
     Active Substance: APIXABAN
     Route: 065

REACTIONS (1)
  - Drug ineffective [Unknown]
